FAERS Safety Report 24820628 (Version 1)
Quarter: 2025Q1

REPORT INFORMATION
  Report Type: Spontaneous
  Country: US (occurrence: US)
  Receive Date: 20250108
  Receipt Date: 20250108
  Transmission Date: 20250408
  Serious: No
  Sender: MYLAN
  Company Number: US-MYLANLABS-2024M1115329

PATIENT
  Age: 78 Year
  Sex: Female
  Weight: 71.67 kg

DRUGS (4)
  1. TYRVAYA [Interacting]
     Active Substance: VARENICLINE TARTRATE
     Indication: Dry eye
     Route: 065
     Dates: end: 20241219
  2. TYRVAYA [Interacting]
     Active Substance: VARENICLINE TARTRATE
     Route: 065
     Dates: end: 20241219
  3. LEVOXYL [Interacting]
     Active Substance: LEVOTHYROXINE SODIUM
     Indication: Product used for unknown indication
     Route: 065
  4. AVASTIN [Interacting]
     Active Substance: BEVACIZUMAB
     Indication: Macular degeneration
     Route: 065
     Dates: start: 20241119

REACTIONS (9)
  - Dry eye [Not Recovered/Not Resolved]
  - Trigeminal nerve disorder [Not Recovered/Not Resolved]
  - Facial nerve disorder [Not Recovered/Not Resolved]
  - Eyelid disorder [Not Recovered/Not Resolved]
  - Swelling face [Not Recovered/Not Resolved]
  - Hypoaesthesia [Not Recovered/Not Resolved]
  - Drug hypersensitivity [Not Recovered/Not Resolved]
  - Drug interaction [Unknown]
  - Off label use [Unknown]

NARRATIVE: CASE EVENT DATE: 20241119
